FAERS Safety Report 23616899 (Version 2)
Quarter: 2024Q2

REPORT INFORMATION
  Report Type: Spontaneous
  Country: US (occurrence: US)
  Receive Date: 20240311
  Receipt Date: 20240409
  Transmission Date: 20240716
  Serious: No
  Sender: FDA-Public Use
  Company Number: US-Blueprint Medicines Corporation-2675

PATIENT
  Sex: Female

DRUGS (2)
  1. AYVAKIT [Suspect]
     Active Substance: AVAPRITINIB
     Indication: Mastocytosis
     Route: 065
     Dates: start: 20240214
  2. AYVAKIT [Suspect]
     Active Substance: AVAPRITINIB
     Route: 065
     Dates: start: 20240214

REACTIONS (4)
  - Lymphadenopathy [Recovering/Resolving]
  - Lymphadenitis [Recovering/Resolving]
  - Lymph node pain [Recovering/Resolving]
  - Fatigue [Unknown]
